FAERS Safety Report 10420728 (Version 1)
Quarter: 2014Q1

REPORT INFORMATION
  Report Type: Spontaneous
  Country: US (occurrence: None)
  Receive Date: 20130917
  Receipt Date: 20130917
  Transmission Date: 20141002
  Serious: Yes (Other)
  Sender: FDA-Public Use
  Company Number: 073937

PATIENT
  Sex: Male

DRUGS (5)
  1. ROTIGOTINE [Suspect]
     Indication: PARKINSON^S DISEASE
     Route: 062
  2. FLOMAX [Concomitant]
  3. DONEPEZIL [Concomitant]
  4. OXYBUTYNIN [Concomitant]
  5. CORTISONE [Concomitant]

REACTIONS (5)
  - Tremor [None]
  - Asthenia [None]
  - Hallucination [None]
  - Confusional state [None]
  - Agitation [None]
